FAERS Safety Report 5676971-2 (Version None)
Quarter: 2008Q1

REPORT INFORMATION
  Report Type: 
  Country: None (occurrence: None)
  Receive Date: 20080324
  Receipt Date: 20080317
  Transmission Date: 20080703
  Serious: Yes (Death)
  Sender: FDA-Public Use
  Company Number: US-BRISTOL-MYERS SQUIBB COMPANY-14117733

PATIENT
  Age: 4 Year
  Sex: Female

DRUGS (10)
  1. ETOPOSIDE [Suspect]
  2. METHOTREXATE [Suspect]
  3. DOXORUBICIN HCL [Suspect]
  4. VINCRISTINE SULFATE [Suspect]
  5. CLADRIBINE [Suspect]
  6. CYTARABINE [Suspect]
  7. MERCAPTOPURINE [Suspect]
     Route: 048
  8. PREDNISONE TAB [Suspect]
  9. VINBLASTINE SULFATE [Suspect]
  10. ASPARAGINASE [Suspect]

REACTIONS (9)
  - ANAPHYLACTIC REACTION [None]
  - EPSTEIN-BARR VIRUS INFECTION [None]
  - FUNGAL INFECTION [None]
  - INTERSTITIAL LUNG DISEASE [None]
  - LUNG INFECTION [None]
  - LYMPHADENOPATHY [None]
  - PYREXIA [None]
  - SINUSITIS FUNGAL [None]
  - SPLENOMEGALY [None]
